FAERS Safety Report 4858771-6 (Version None)
Quarter: 2005Q4

REPORT INFORMATION
  Report Type: 
  Country: None (occurrence: None)
  Receive Date: 20051219
  Receipt Date: 20051027
  Transmission Date: 20060501
  Serious: No
  Sender: FDA-Public Use
  Company Number: US-GLAXOSMITHKLINE-A0579877A

PATIENT
  Age: 33 Year
  Sex: Female

DRUGS (2)
  1. NICODERM CQ [Suspect]
     Dates: end: 20051026
  2. NICODERM CQ [Suspect]
     Dates: end: 20051026

REACTIONS (12)
  - APPLICATION SITE BLEEDING [None]
  - APPLICATION SITE IRRITATION [None]
  - APPLICATION SITE PRURITUS [None]
  - DRY SKIN [None]
  - ERYTHEMA [None]
  - HEADACHE [None]
  - HYPERSENSITIVITY [None]
  - PRURITUS [None]
  - SKIN EXFOLIATION [None]
  - SKIN ULCER [None]
  - SOMNOLENCE [None]
  - URTICARIA [None]
